FAERS Safety Report 5268079-5 (Version None)
Quarter: 2007Q1

REPORT INFORMATION
  Report Type: 
  Country: None (occurrence: None)
  Receive Date: 20070319
  Receipt Date: 20070309
  Transmission Date: 20070707
  Serious: Yes (Death)
  Sender: FDA-Public Use
  Company Number: BR-ELI_LILLY_AND_COMPANY-BR200703002807

PATIENT
  Age: 58 Year
  Sex: Female
  Weight: 59 kg

DRUGS (4)
  1. ZYPREXA [Suspect]
     Indication: SCHIZOPHRENIA
     Dosage: UNK, 2/D
     Route: 065
     Dates: start: 20021001, end: 20070301
  2. CARBOLITIUM [Concomitant]
     Dosage: 450 MG, 2/D
     Route: 048
  3. ATENOLOL [Concomitant]
     Dosage: 25 MG, UNKNOWN
     Route: 048
  4. BIPERIDEN HYDROCHLORIDE TAB [Concomitant]
     Dosage: UNK, UNKNOWN
     Route: 048

REACTIONS (5)
  - CONSTIPATION [None]
  - DEATH [None]
  - DEMENTIA [None]
  - THIRST [None]
  - WEIGHT DECREASED [None]
